FAERS Safety Report 4444070-3 (Version None)
Quarter: 2004Q3

REPORT INFORMATION
  Report Type: 
  Country: None (occurrence: None)
  Receive Date: 20040729
  Receipt Date: 20040224
  Transmission Date: 20050211
  Serious: Yes (Other)
  Sender: FDA-Public Use
  Company Number: US-JNJFOC-20031201377

PATIENT
  Age: 23 Year
  Sex: Male
  Weight: 120.6568 kg

DRUGS (9)
  1. RISPERDAL [Suspect]
     Indication: AUTISM
     Dosage: 0.5 MG 1 IN 1 DAY ORAL
     Route: 048
     Dates: start: 20031104, end: 20031110
  2. SINGULAIR [Concomitant]
  3. PROVENTIL [Concomitant]
  4. FISH OIL (FISH OIL) [Concomitant]
  5. PULMICORT [Concomitant]
  6. SINUTAB (SINUTAB ^WARNER CHILCOTT^) [Concomitant]
  7. VITAMINS (VITAMINS) [Concomitant]
  8. ZYRTEC [Concomitant]
  9. XOPENEX [Concomitant]

REACTIONS (2)
  - PRIAPISM [None]
  - WHITE BLOOD CELL COUNT INCREASED [None]
